FAERS Safety Report 8524355-1 (Version None)
Quarter: 2012Q2

REPORT INFORMATION
  Report Type: 
  Country: None (occurrence: None)
  Receive Date: 20120406
  Receipt Date: 20110822
  Transmission Date: 20120825
  Serious: Yes (Other)
  Sender: FDA-Public Use
  Company Number: US-2011-10345

PATIENT

DRUGS (3)
  1. BUSULFEX [Suspect]
  2. ALEMTUZUMAB (ALEMTUZUMAB) [Concomitant]
  3. FLUDARABINE PHOSPHATE [Concomitant]

REACTIONS (1)
  - VENOOCCLUSIVE DISEASE [None]
